FAERS Safety Report 10229886 (Version 1)
Quarter: 2014Q2

REPORT INFORMATION
  Report Type: Spontaneous
  Country: US (occurrence: None)
  Receive Date: 20140609
  Receipt Date: 20140609
  Transmission Date: 20141212
  Serious: Yes (Other)
  Sender: FDA-Public Use
  Company Number: UTC-044081

PATIENT
  Age: 66 Year
  Sex: Female
  Weight: 45.4 kg

DRUGS (2)
  1. REMODULIN (TREPOSTINIL SODIUM (SQ/IV)) INJECTION, 2.5MG/ML [Suspect]
     Indication: PULMONARY ARTERIAL HYPERTENSION
     Dosage: 0.031 UG/KG, CONTINUING, SUBCUTANEOUS
     Route: 058
     Dates: start: 20110801, end: 20140106
  2. ADCIRCA (TADALAFIL) [Concomitant]

REACTIONS (3)
  - Pulmonary arterial hypertension [None]
  - Right ventricular failure [None]
  - Infusion site pain [None]
